FAERS Safety Report 6588891-X (Version None)
Quarter: 2010Q1

REPORT INFORMATION
  Report Type: 
  Country: None (occurrence: None)
  Receive Date: 20100218
  Receipt Date: 20100215
  Transmission Date: 20100710
  Serious: Yes (Hospitalization, Other)
  Sender: FDA-Public Use
  Company Number: D0066487A

PATIENT
  Sex: Female

DRUGS (19)
  1. LAMICTAL [Suspect]
     Indication: EPILEPSY
     Route: 048
     Dates: start: 20070703, end: 20070719
  2. CEFUROXIME [Suspect]
     Indication: PNEUMONIA
     Dosage: 1.5G THREE TIMES PER DAY
     Route: 042
     Dates: start: 20070714, end: 20070714
  3. ROCEPHIN [Suspect]
     Indication: PNEUMONIA
     Dosage: 2G IN THE MORNING
     Route: 042
     Dates: start: 20070715, end: 20070717
  4. RULID [Suspect]
     Indication: PNEUMONIA
     Dosage: 300MG IN THE MORNING
     Route: 048
     Dates: start: 20070715, end: 20070717
  5. NOVALGIN [Suspect]
     Dosage: 1G SINGLE DOSE
     Route: 042
     Dates: start: 20070717, end: 20070717
  6. SEROQUEL [Suspect]
     Indication: SCHIZOPHRENIA
     Dosage: 25MG TWICE PER DAY
     Route: 048
     Dates: start: 20070627
  7. VALPROIC ACID [Suspect]
     Indication: EPILEPSY
     Dosage: 600MG FOUR TIMES PER DAY
     Route: 048
     Dates: start: 20070706, end: 20070714
  8. AMBROXOL [Suspect]
     Dosage: 20DROP THREE TIMES PER DAY
     Route: 048
     Dates: start: 20070706, end: 20070714
  9. PARACETAMOL [Suspect]
     Dosage: 500MG IN THE MORNING
     Route: 048
     Dates: start: 20070714, end: 20070716
  10. HEPARIN [Suspect]
     Indication: THROMBOSIS PROPHYLAXIS
     Dosage: 7500IU TWICE PER DAY
     Route: 058
     Dates: start: 20070714, end: 20070717
  11. ERGENYL [Suspect]
     Indication: EPILEPSY
     Dosage: 600MG FOUR TIMES PER DAY
     Route: 048
     Dates: start: 20070714
  12. NAC 600 [Suspect]
     Dosage: 600MG IN THE MORNING
     Route: 048
     Dates: start: 20070714
  13. BERODUAL [Suspect]
     Indication: CHRONIC OBSTRUCTIVE PULMONARY DISEASE
     Dosage: 2PUFF THREE TIMES PER DAY
     Route: 055
     Dates: start: 20070715
  14. ORFIRIL [Suspect]
     Indication: EPILEPSY
     Dosage: 600MG SEE DOSAGE TEXT
     Route: 048
     Dates: start: 20070620, end: 20070706
  15. EMBOLEX [Suspect]
     Indication: THROMBOSIS PROPHYLAXIS
     Dosage: 1AMP IN THE MORNING
     Route: 058
     Dates: start: 20070620, end: 20070706
  16. INFLANEFRAN [Suspect]
     Indication: CONJUNCTIVITIS
     Route: 031
     Dates: start: 20070620, end: 20070706
  17. KALINOR [Suspect]
     Route: 048
     Dates: start: 20070621
  18. MUCOSOLVAN [Suspect]
     Route: 048
     Dates: start: 20070629, end: 20070703
  19. MULTIPLE MEDICATION [Concomitant]
     Route: 065

REACTIONS (14)
  - CHRONIC OBSTRUCTIVE PULMONARY DISEASE [None]
  - EYE SWELLING [None]
  - GENITAL EROSION [None]
  - LIP EROSION [None]
  - LIP SWELLING [None]
  - LOBAR PNEUMONIA [None]
  - MUCOSAL EROSION [None]
  - OCULAR HYPERAEMIA [None]
  - ORAL MUCOSA EROSION [None]
  - ORAL MUCOSAL ERYTHEMA [None]
  - PRURIGO [None]
  - PYREXIA [None]
  - RASH MACULAR [None]
  - STEVENS-JOHNSON SYNDROME [None]
